FAERS Safety Report 6596854-3 (Version None)
Quarter: 2010Q1

REPORT INFORMATION
  Report Type: 
  Country: None (occurrence: None)
  Receive Date: 20100222
  Receipt Date: 20100222
  Transmission Date: 20100710
  Serious: Yes (Other)
  Sender: FDA-Public Use
  Company Number: None

PATIENT
  Age: 36 Year
  Sex: Female
  Weight: 55.3388 kg

DRUGS (1)
  1. CYMBALTA [Suspect]
     Indication: ANXIETY
     Dosage: 30 MG ONCE DAILY PO
     Route: 048
     Dates: start: 20090701, end: 20100215

REACTIONS (15)
  - ABDOMINAL PAIN [None]
  - BURNING SENSATION [None]
  - DIARRHOEA [None]
  - DRUG DOSE OMISSION [None]
  - DRUG WITHDRAWAL SYNDROME [None]
  - ERYTHEMA [None]
  - FEAR [None]
  - FLUSHING [None]
  - HEADACHE [None]
  - INAPPROPRIATE SCHEDULE OF DRUG ADMINISTRATION [None]
  - MALAISE [None]
  - NAUSEA [None]
  - PYREXIA [None]
  - TREATMENT NONCOMPLIANCE [None]
  - VOMITING [None]
